FAERS Safety Report 24150091 (Version 1)
Quarter: 2024Q3

REPORT INFORMATION
  Report Type: Spontaneous
  Country: CA (occurrence: None)
  Receive Date: 20240730
  Receipt Date: 20240730
  Transmission Date: 20241017
  Serious: Yes (Hospitalization, Other)
  Sender: ASTRAZENECA
  Company Number: 2020SF33537

PATIENT
  Age: 79 Year
  Sex: Male

DRUGS (5)
  1. SYMBICORT [Suspect]
     Active Substance: BUDESONIDE\FORMOTEROL FUMARATE DIHYDRATE
     Indication: Product used for unknown indication
     Dosage: 2 PUFFS, TWICE DAILY
     Route: 055
  2. PREDNISONE [Suspect]
     Active Substance: PREDNISONE
     Indication: Product used for unknown indication
     Route: 065
  3. PREDNISONE [Suspect]
     Active Substance: PREDNISONE
     Indication: Product used for unknown indication
     Route: 065
  4. ALBUTEROL SULFATE [Suspect]
     Active Substance: ALBUTEROL SULFATE
     Indication: Product used for unknown indication
     Route: 065
  5. SPIRIVA [Suspect]
     Active Substance: TIOTROPIUM BROMIDE MONOHYDRATE
     Indication: Product used for unknown indication
     Route: 065

REACTIONS (13)
  - Rectal haemorrhage [Unknown]
  - Upper gastrointestinal haemorrhage [Unknown]
  - Dyspnoea [Unknown]
  - Emphysema [Unknown]
  - Exercise tolerance decreased [Unknown]
  - Obstructive airways disorder [Unknown]
  - Productive cough [Unknown]
  - Pulmonary embolism [Unknown]
  - Pulmonary mass [Unknown]
  - Respiratory tract infection [Unknown]
  - Sputum discoloured [Unknown]
  - Hospitalisation [Unknown]
  - Therapeutic product effect incomplete [Unknown]
